FAERS Safety Report 6788636-4 (Version None)
Quarter: 2010Q2

REPORT INFORMATION
  Report Type: 
  Country: None (occurrence: None)
  Receive Date: 20100623
  Receipt Date: 20080425
  Transmission Date: 20101027
  Serious: No
  Sender: FDA-Public Use
  Company Number: US-PFIZER INC-2008036568

PATIENT
  Age: 17 Year
  Sex: Female

DRUGS (3)
  1. GEODON [Suspect]
  2. CYMBALTA [Concomitant]
  3. DEPAKOTE [Concomitant]

REACTIONS (1)
  - DYSTONIA [None]
